FAERS Safety Report 8397545-9 (Version None)
Quarter: 2012Q2

REPORT INFORMATION
  Report Type: 
  Country: None (occurrence: None)
  Receive Date: 20120531
  Receipt Date: 20120524
  Transmission Date: 20120825
  Serious: Yes (Other)
  Sender: FDA-Public Use
  Company Number: JP-SANOFI-AVENTIS-2011SA031304

PATIENT
  Age: 73 Year
  Sex: Male

DRUGS (3)
  1. LANTUS [Suspect]
     Dosage: DOSE:100 INTERNATIONAL UNIT(S)/MILLILITRE
     Route: 058
     Dates: start: 20110516, end: 20110518
  2. SOLOSTAR [Suspect]
     Indication: DEVICE THERAPY
     Dates: start: 20110516, end: 20110518
  3. NOVORAPID [Suspect]
     Route: 058
     Dates: end: 20110501

REACTIONS (3)
  - HEPATIC FUNCTION ABNORMAL [None]
  - EOSINOPHIL COUNT INCREASED [None]
  - PYREXIA [None]
